FAERS Safety Report 17678648 (Version 1)
Quarter: 2020Q2

REPORT INFORMATION
  Report Type: Spontaneous
  Country: DE (occurrence: DE)
  Receive Date: 20200417
  Receipt Date: 20200417
  Transmission Date: 20200714
  Serious: Yes (Life-Threatening, Other)
  Sender: FDA-Public Use
  Company Number: DE-SHILPA MEDICARE LIMITED-SML-DE-2020-00140

PATIENT
  Sex: Male

DRUGS (5)
  1. IMATINIB, UNKNOWN [Suspect]
     Active Substance: IMATINIB
     Indication: CHRONIC MYELOID LEUKAEMIA
     Dosage: 400 MILLIGRAM, ON 7 DAYS PER WEEK
     Route: 065
     Dates: start: 20181114, end: 20190107
  2. HYDROXYUREA. [Suspect]
     Active Substance: HYDROXYUREA
     Indication: CHRONIC MYELOID LEUKAEMIA
     Dosage: TOTAL DAILY DOSE 4000MG, ON 6 DAYS PER WEEK
     Route: 065
     Dates: start: 20181109, end: 20181114
  3. IMATINIB, UNKNOWN [Suspect]
     Active Substance: IMATINIB
     Dosage: 600 MILLIGRAM, ON 7 DAYS PER WEEK
     Route: 065
     Dates: start: 20190108, end: 20191028
  4. IMATINIB, UNKNOWN [Suspect]
     Active Substance: IMATINIB
     Dosage: 600 MILLIGRAM, ON 7 DAYS PER WEEK
     Route: 065
     Dates: start: 20190108, end: 20191028
  5. IMATINIB, UNKNOWN [Suspect]
     Active Substance: IMATINIB
     Indication: CHRONIC MYELOID LEUKAEMIA
     Dosage: 400 MILLIGRAM, ON 7 DAYS PER WEEK
     Route: 065
     Dates: start: 20181114, end: 20190107

REACTIONS (5)
  - Gastroenteritis norovirus [Recovered/Resolved]
  - Eyelid oedema [Recovered/Resolved]
  - Muscle spasms [Not Recovered/Not Resolved]
  - Oral herpes [Recovered/Resolved]
  - Dry skin [Recovered/Resolved]

NARRATIVE: CASE EVENT DATE: 20181126
